FAERS Safety Report 19879764 (Version 1)
Quarter: 2021Q3

REPORT INFORMATION
  Report Type: Spontaneous
  Country: RO (occurrence: RO)
  Receive Date: 20210924
  Receipt Date: 20210924
  Transmission Date: 20211014
  Serious: Yes (Other)
  Sender: FDA-Public Use
  Company Number: RO-AMGEN-ROUSP2021146846

PATIENT
  Age: 33 Year
  Sex: Female

DRUGS (7)
  1. ZARZIO [Concomitant]
     Active Substance: FILGRASTIM
     Indication: ADENOCARCINOMA
     Dosage: UNK
  2. GRANISETRON [Concomitant]
     Active Substance: GRANISETRON
     Indication: ADENOCARCINOMA
     Dosage: UNK, 1TAB/DAY
  3. VECTIBIX [Suspect]
     Active Substance: PANITUMUMAB
     Indication: ADENOCARCINOMA
     Dosage: UNK UNK, Q2WK
     Route: 042
     Dates: start: 20201113
  4. OXALIPLATIN. [Concomitant]
     Active Substance: OXALIPLATIN
     Indication: ADENOCARCINOMA
     Dosage: UNK
     Dates: start: 20201113
  5. BINOCRIT [Concomitant]
     Active Substance: ERYTHROPOIETIN
     Indication: ADENOCARCINOMA
  6. 5?FU [FLUOROURACIL] [Concomitant]
     Active Substance: FLUOROURACIL
     Indication: ADENOCARCINOMA
     Dosage: UNK
     Dates: start: 20201113
  7. FOLINIC ACID [Concomitant]
     Active Substance: LEUCOVORIN
     Indication: ADENOCARCINOMA
     Dosage: UNK
     Dates: start: 20201113

REACTIONS (3)
  - Dermatitis acneiform [Not Recovered/Not Resolved]
  - Anaemia [Not Recovered/Not Resolved]
  - Leukopenia [Unknown]

NARRATIVE: CASE EVENT DATE: 20201127
